FAERS Safety Report 16158370 (Version 1)
Quarter: 2019Q2

REPORT INFORMATION
  Report Type: Spontaneous
  Country: US (occurrence: US)
  Receive Date: 20190404
  Receipt Date: 20190404
  Transmission Date: 20190711
  Serious: Yes (Other)
  Sender: FDA-Public Use
  Company Number: US-BAYER-2019-065406

PATIENT
  Age: 28 Year
  Sex: Male

DRUGS (1)
  1. GADOBUTROL. [Suspect]
     Active Substance: GADOBUTROL
     Indication: CONTRAST MEDIA ALLERGY
     Dosage: 6.5 ML, ONCE

REACTIONS (2)
  - Throat irritation [Recovered/Resolved]
  - Nausea [Recovered/Resolved]

NARRATIVE: CASE EVENT DATE: 20190401
